FAERS Safety Report 21564203 (Version 1)
Quarter: 2022Q4

REPORT INFORMATION
  Report Type: Other
  Country: CA (occurrence: CA)
  Receive Date: 20221108
  Receipt Date: 20221108
  Transmission Date: 20230113
  Serious: Yes (Death, Other)
  Sender: FDA-Public Use
  Company Number: CA-APOTEX-2022AP015188

PATIENT
  Age: 72 Year
  Sex: Female

DRUGS (5)
  1. AMBRISENTAN [Suspect]
     Active Substance: AMBRISENTAN
     Indication: Pulmonary arterial hypertension
     Dosage: UNK
     Route: 065
  2. AMBRISENTAN [Suspect]
     Active Substance: AMBRISENTAN
     Indication: Heritable pulmonary arterial hypertension
     Dosage: 10 MILLIGRAM
     Route: 065
  3. TADALAFIL [Suspect]
     Active Substance: TADALAFIL
     Indication: Pulmonary hypertension
     Dosage: 40 MILLIGRAM, QD
     Route: 065
  4. TADALAFIL [Suspect]
     Active Substance: TADALAFIL
     Dosage: 20 MILLIGRAM, QD
     Route: 065
  5. UPTRAVI [Suspect]
     Active Substance: SELEXIPAG
     Indication: Pulmonary arterial hypertension
     Dosage: UNK, QD
     Route: 048

REACTIONS (3)
  - Death [Fatal]
  - Hepatic cirrhosis [Unknown]
  - Weight decreased [Unknown]
